FAERS Safety Report 10063673 (Version 1)
Quarter: 2014Q2

REPORT INFORMATION
  Report Type: Report from Study
  Country: CA (occurrence: CA)
  Receive Date: 20140407
  Receipt Date: 20140407
  Transmission Date: 20141212
  Serious: Yes (Other)
  Sender: FDA-Public Use
  Company Number: PHHY2014CA040820

PATIENT
  Age: 46 Year
  Sex: Male
  Weight: 118 kg

DRUGS (1)
  1. CLOZARIL [Suspect]
     Dates: start: 19551017

REACTIONS (4)
  - Bundle branch block right [Unknown]
  - Electrocardiogram abnormal [Unknown]
  - QRS axis abnormal [Unknown]
  - Electrocardiogram low voltage [Unknown]
